FAERS Safety Report 7772325-3 (Version None)
Quarter: 2011Q3

REPORT INFORMATION
  Report Type: 
  Country: None (occurrence: None)
  Receive Date: 20110922
  Receipt Date: 20110413
  Transmission Date: 20111222
  Serious: Yes (Other)
  Sender: FDA-Public Use
  Company Number: US-ASTRAZENECA-2009UW21575

PATIENT
  Age: 555 Month
  Sex: Female
  Weight: 74.8 kg

DRUGS (14)
  1. VISTARIL [Concomitant]
     Dosage: PRN
     Dates: start: 20050829
  2. LORTAB [Concomitant]
     Dates: start: 20050829
  3. PHENERGAN HCL [Concomitant]
     Dates: start: 20050829
  4. M.V.I. [Concomitant]
     Dates: start: 20050829
  5. MACRODANTIN [Concomitant]
     Dates: start: 20050829
  6. REMERON [Concomitant]
     Dates: start: 20050829
  7. SEROQUEL [Suspect]
     Dosage: 25-50 MG
     Route: 048
     Dates: start: 20050829
  8. LEXAPRO [Concomitant]
     Dates: start: 20050829
  9. SEROQUEL [Suspect]
     Indication: INSOMNIA
     Dosage: 25-300 MG
     Route: 048
     Dates: start: 20050601, end: 20070101
  10. BUSPAR [Concomitant]
     Indication: ANXIETY
     Dates: start: 20050829
  11. KLONOPIN [Concomitant]
     Dates: start: 20050829
  12. RESTORIL [Concomitant]
     Dates: start: 20050829
  13. LOMOTIL [Concomitant]
     Dates: start: 20050829
  14. PANCREASE [Concomitant]
     Dates: start: 20050829

REACTIONS (2)
  - NEUROLEPTIC MALIGNANT SYNDROME [None]
  - PANCREATITIS [None]
